FAERS Safety Report 6024822-9 (Version None)
Quarter: 2008Q4

REPORT INFORMATION
  Report Type: 
  Country: None (occurrence: None)
  Receive Date: 20081224
  Receipt Date: 20081218
  Transmission Date: 20090506
  Serious: Yes (Other)
  Sender: FDA-Public Use
  Company Number: GXKR2008IE12126

PATIENT
  Age: 48 Year
  Sex: Male

DRUGS (2)
  1. SIMVASTATIN [Suspect]
     Dosage: 40 MG, DAY, ORAL
     Route: 048
     Dates: start: 20080829
  2. ACETYLSALICYLIC ACID SRT [Concomitant]

REACTIONS (1)
  - HYPERKALAEMIA [None]
